FAERS Safety Report 16108200 (Version 1)
Quarter: 2019Q1

REPORT INFORMATION
  Report Type: Spontaneous
  Country: BR (occurrence: BR)
  Receive Date: 20190322
  Receipt Date: 20190322
  Transmission Date: 20190418
  Serious: Yes (Death, Hospitalization, Other)
  Sender: FDA-Public Use
  Company Number: BR-BRISTOL-MYERS SQUIBB COMPANY-BMS-2019-027356

PATIENT
  Age: 45 Year
  Sex: Female
  Weight: 72.2 kg

DRUGS (2)
  1. FLUCONAZOL [Concomitant]
     Active Substance: FLUCONAZOLE
     Indication: PRODUCT USED FOR UNKNOWN INDICATION
     Route: 065
  2. OPDIVO [Suspect]
     Active Substance: NIVOLUMAB
     Indication: LUNG CANCER METASTATIC
     Dosage: 213 MILLIGRAM
     Route: 042
     Dates: start: 20160726

REACTIONS (6)
  - Multiple organ dysfunction syndrome [Fatal]
  - Malignant neoplasm progression [Fatal]
  - Ischaemic stroke [Unknown]
  - Hepatitis [Unknown]
  - Pancreatitis [Unknown]
  - Cholestasis [Unknown]
